FAERS Safety Report 7805966-5 (Version None)
Quarter: 2011Q4

REPORT INFORMATION
  Report Type: 
  Country: None (occurrence: None)
  Receive Date: 20111011
  Receipt Date: 20110929
  Transmission Date: 20120403
  Serious: Yes (Hospitalization)
  Sender: FDA-Public Use
  Company Number: FR-ELI_LILLY_AND_COMPANY-FR201109008215

PATIENT
  Sex: Male

DRUGS (11)
  1. ALLOPURINOL [Concomitant]
     Dosage: UNK
  2. HUMALOG [Suspect]
     Dosage: 16 U, OTHER
     Route: 058
  3. NICARDIPINE HCL [Concomitant]
     Dosage: 50 MG, UNK
     Route: 048
  4. ATENOLOL [Concomitant]
     Dosage: UNK
  5. HUMALOG [Suspect]
     Dosage: 6 U, EACH MORNING
     Route: 058
  6. OLMESARTAN MEDOXOMIL [Concomitant]
     Dosage: UNK
  7. CLONAZEPAM [Concomitant]
     Dosage: UNK
  8. ASPIRIN [Concomitant]
     Dosage: 75 MG, UNK
     Route: 048
  9. SIMVASTATIN [Concomitant]
     Dosage: UNK
  10. HUMALOG [Suspect]
     Dosage: 18 U, EACH EVENING
     Route: 058
  11. ACETAMINOPHEN AND TRAMADOL HCL [Concomitant]
     Dosage: UNK

REACTIONS (4)
  - HYPOGLYCAEMIC COMA [None]
  - PALLOR [None]
  - MUSCLE CONTRACTURE [None]
  - HYPERHIDROSIS [None]
